FAERS Safety Report 16917218 (Version 3)
Quarter: 2020Q2

REPORT INFORMATION
  Report Type: Other
  Country: IE (occurrence: IE)
  Receive Date: 20191015
  Receipt Date: 20200413
  Transmission Date: 20200713
  Serious: Yes (Other)
  Sender: FDA-Public Use
  Company Number: IE-CELLTRION INC.-2019IE025497

PATIENT

DRUGS (3)
  1. RITUXIMAB (UNKNOWN) [Suspect]
     Active Substance: RITUXIMAB
     Indication: PRODUCT USED FOR UNKNOWN INDICATION
     Dosage: UNK
     Route: 065
  2. CLOZARIL [Suspect]
     Active Substance: CLOZAPINE
     Dosage: UNK
     Route: 048
     Dates: end: 20200228
  3. CLOZARIL [Suspect]
     Active Substance: CLOZAPINE
     Indication: SCHIZOPHRENIA
     Dosage: UNK
     Route: 048
     Dates: start: 20040813, end: 2019

REACTIONS (9)
  - Neutrophil count increased [Recovered/Resolved]
  - Contraindicated product administered [Unknown]
  - Haemoglobin decreased [Not Recovered/Not Resolved]
  - Agranulocytosis [Recovered/Resolved]
  - Leukopenia [Recovering/Resolving]
  - Lymphoma [Unknown]
  - Differential white blood cell count abnormal [Unknown]
  - Lower respiratory tract infection [Unknown]
  - Thrombocytopenia [Recovered/Resolved]

NARRATIVE: CASE EVENT DATE: 20190423
